FAERS Safety Report 19380820 (Version 4)
Quarter: 2021Q3

REPORT INFORMATION
  Report Type: Report from Study
  Country: US (occurrence: US)
  Receive Date: 20210607
  Receipt Date: 20210826
  Transmission Date: 20211014
  Serious: Yes (Other)
  Sender: FDA-Public Use
  Company Number: US-BIOVITRUM-2021US1246

PATIENT
  Sex: Female

DRUGS (1)
  1. KINERET [Suspect]
     Active Substance: ANAKINRA
     Indication: PRODUCT USED FOR UNKNOWN INDICATION
     Route: 058

REACTIONS (12)
  - Pelvic bone injury [Unknown]
  - Drug ineffective [Unknown]
  - Pain in extremity [Unknown]
  - Condition aggravated [Unknown]
  - Arthritis [Recovering/Resolving]
  - Back pain [Unknown]
  - Liquid product physical issue [Unknown]
  - Spinal compression fracture [Unknown]
  - Product dose omission issue [Unknown]
  - Fall [Unknown]
  - Laryngitis [Unknown]
  - Peripheral swelling [Not Recovered/Not Resolved]
